FAERS Safety Report 11307812 (Version 1)
Quarter: 2015Q3

REPORT INFORMATION
  Report Type: Spontaneous
  Country: US (occurrence: US)
  Receive Date: 20150724
  Receipt Date: 20150724
  Transmission Date: 20151125
  Serious: No
  Sender: FDA-Public Use
  Company Number: US-ASTRAZENECA-2015SE68445

PATIENT
  Sex: Male

DRUGS (1)
  1. PRILOSEC OTC [Suspect]
     Active Substance: OMEPRAZOLE MAGNESIUM
     Indication: CHEST PAIN
     Dosage: 1 TABLET, DAILY, FOR 2 DAYS
     Route: 048
     Dates: start: 20150710, end: 20150711

REACTIONS (4)
  - Dysphonia [Not Recovered/Not Resolved]
  - Throat tightness [Unknown]
  - Sensation of foreign body [Not Recovered/Not Resolved]
  - Dyspnoea [Recovered/Resolved]

NARRATIVE: CASE EVENT DATE: 20150710
